FAERS Safety Report 8439522-5 (Version None)
Quarter: 2012Q2

REPORT INFORMATION
  Report Type: 
  Country: None (occurrence: None)
  Receive Date: 20120615
  Receipt Date: 20120611
  Transmission Date: 20120825
  Serious: Yes (Other)
  Sender: FDA-Public Use
  Company Number: US-PFIZER INC-2012140494

PATIENT
  Sex: Male
  Weight: 99.8 kg

DRUGS (9)
  1. GABAPENTIN [Suspect]
     Indication: FIBROMYALGIA
     Dosage: 300 MG, 3X/DAY
  2. CYMBALTA [Suspect]
     Indication: FIBROMYALGIA
     Dosage: UNK
  3. GABAPENTIN [Suspect]
     Indication: PAIN
     Dosage: 100 MG, 3X/DAY
     Dates: start: 20101101
  4. LYRICA [Suspect]
     Indication: FIBROMYALGIA
     Dosage: 75 MG, DAILY
     Dates: start: 20110201
  5. GABAPENTIN [Suspect]
     Dosage: 600 MG, 3X/DAY
     Dates: end: 20110201
  6. CLONAZEPAM [Concomitant]
     Indication: PANIC ATTACK
  7. CLONAZEPAM [Concomitant]
     Indication: ANXIETY
     Dosage: 1 MG, 3X/DAY
  8. GABAPENTIN [Suspect]
     Dosage: 400 MG, 3X/DAY
  9. MIRTAZAPINE [Concomitant]
     Indication: DEPRESSION
     Dosage: 30 MG, DAILY

REACTIONS (15)
  - PAIN [None]
  - DEPRESSION [None]
  - DEHYDRATION [None]
  - TREMOR [None]
  - MALAISE [None]
  - DRUG INEFFECTIVE [None]
  - FOOD INTOLERANCE [None]
  - FATIGUE [None]
  - MEMORY IMPAIRMENT [None]
  - FEELING ABNORMAL [None]
  - IRRITABLE BOWEL SYNDROME [None]
  - SOMNOLENCE [None]
  - FIBROMYALGIA [None]
  - BLOOD PRESSURE ABNORMAL [None]
  - WEIGHT FLUCTUATION [None]
